FAERS Safety Report 21201470 (Version 3)
Quarter: 2022Q4

REPORT INFORMATION
  Report Type: Other
  Country: JP (occurrence: JP)
  Receive Date: 20220811
  Receipt Date: 20221013
  Transmission Date: 20230113
  Serious: Yes (Death, Disabling, Other)
  Sender: FDA-Public Use
  Company Number: JP-CHUGAI-2022030890

PATIENT
  Age: 69 Year
  Sex: Male
  Weight: 72.3 kg

DRUGS (6)
  1. POLATUZUMAB VEDOTIN [Suspect]
     Active Substance: POLATUZUMAB VEDOTIN
     Indication: Diffuse large B-cell lymphoma
     Dosage: 1.8 MILLIGRAM/KILOGRAM, SINGLE, MOST RECENT DOSE ON 15/SEP/2021
     Route: 041
     Dates: start: 20210915
  2. BENDAMUSTINE HYDROCHLORIDE [Suspect]
     Active Substance: BENDAMUSTINE HYDROCHLORIDE
     Indication: Diffuse large B-cell lymphoma
     Route: 041
     Dates: start: 20210915, end: 20210916
  3. RITUXIMAB [Suspect]
     Active Substance: RITUXIMAB
     Indication: Diffuse large B-cell lymphoma
     Dosage: SINGLE, MOST RECENT DOSE ON 16/SEP/2021
     Route: 041
     Dates: start: 20210916
  4. VFEND [Concomitant]
     Active Substance: VORICONAZOLE
     Indication: Infection prophylaxis
     Dosage: UNK
     Route: 065
     Dates: end: 20210915
  5. CEFTAZIDIME [Concomitant]
     Active Substance: CEFTAZIDIME
     Indication: Infection prophylaxis
     Dosage: UNK
     Route: 065
     Dates: end: 20210915
  6. CUBICIN [Concomitant]
     Active Substance: DAPTOMYCIN
     Indication: Infection prophylaxis
     Dosage: UNK
     Route: 065
     Dates: start: 20210915, end: 20210921

REACTIONS (4)
  - Myelosuppression [Fatal]
  - Infection [Fatal]
  - Renal impairment [Not Recovered/Not Resolved]
  - Hepatic function abnormal [Not Recovered/Not Resolved]

NARRATIVE: CASE EVENT DATE: 20210915
